FAERS Safety Report 21091299 (Version 2)
Quarter: 2022Q3

REPORT INFORMATION
  Report Type: Spontaneous
  Country: FR (occurrence: FR)
  Receive Date: 20220716
  Receipt Date: 20220727
  Transmission Date: 20221027
  Serious: Yes (Life-Threatening, Hospitalization, Other)
  Sender: FDA-Public Use
  Company Number: FR-MACLEODS PHARMACEUTICALS US LTD-MAC2022036459

PATIENT

DRUGS (4)
  1. TRAMADOL [Suspect]
     Active Substance: TRAMADOL
     Indication: Intervertebral disc protrusion
     Dosage: 100 MILLIGRAM, PRN, SUSTAINED RELEASE TABLETS, WHEN NEEDED (MAXIMUM OF 2 TABLETS PER DAY)
     Route: 065
     Dates: start: 2018, end: 2018
  2. TRAMADOL [Suspect]
     Active Substance: TRAMADOL
     Indication: Spinal pain
     Dosage: 5 DOSAGE FORM, QD (FIVE SLOW-RELEASE TABLETS PER DAY (500 MG DAILY)
     Route: 065
     Dates: start: 2018, end: 2018
  3. TRAMADOL [Suspect]
     Active Substance: TRAMADOL
     Dosage: 1000 MILLIGRAM, QD (TRAMADOL ORAL SOLUTION, THE MAXIMUM DOSE WAS 450 MG PER DAY)
     Route: 065
     Dates: start: 2019, end: 2019
  4. TRAMADOL [Suspect]
     Active Substance: TRAMADOL
     Dosage: 2000 MILLIGRAM, QD
     Route: 065
     Dates: start: 2019, end: 202003

REACTIONS (10)
  - Suicide attempt [Unknown]
  - Major depression [Unknown]
  - Impatience [Recovered/Resolved]
  - Drug withdrawal syndrome [Recovered/Resolved]
  - Suicidal ideation [Unknown]
  - Anxiety [Recovered/Resolved]
  - Diarrhoea [Recovered/Resolved]
  - Chills [Recovered/Resolved]
  - Drug dependence [Unknown]
  - Intentional product misuse [Recovered/Resolved]

NARRATIVE: CASE EVENT DATE: 20200301
